FAERS Safety Report 15028983 (Version 1)
Quarter: 2018Q2

REPORT INFORMATION
  Report Type: Spontaneous
  Country: US (occurrence: US)
  Receive Date: 20180528
  Receipt Date: 20180528
  Transmission Date: 20180711
  Serious: Yes (Hospitalization)
  Sender: FDA-Public Use
  Company Number: None

PATIENT
  Age: 69 Year
  Sex: Male
  Weight: 107 kg

DRUGS (1)
  1. TAXOL [Suspect]
     Active Substance: PACLITAXEL
     Indication: LUNG NEOPLASM MALIGNANT
     Route: 042
     Dates: start: 20180502, end: 20180502

REACTIONS (5)
  - Cough [None]
  - Tachypnoea [None]
  - Hypotension [None]
  - Wheezing [None]
  - Anaphylactic reaction [None]

NARRATIVE: CASE EVENT DATE: 20180502
